FAERS Safety Report 19358395 (Version 2)
Quarter: 2021Q2

REPORT INFORMATION
  Report Type: Report from Study
  Country: KR (occurrence: KR)
  Receive Date: 20210602
  Receipt Date: 20210612
  Transmission Date: 20210717
  Serious: Yes (Other)
  Sender: FDA-Public Use
  Company Number: KR-AMGEN INC.-KORCT2021084102

PATIENT
  Age: 38 Year
  Sex: Male

DRUGS (84)
  1. OLARATUMAB [Concomitant]
     Active Substance: OLARATUMAB
     Dosage: UNK UNK, QD
     Dates: start: 20181109
  2. OLARATUMAB [Concomitant]
     Active Substance: OLARATUMAB
     Dosage: UNK UNK, QD
     Dates: start: 20190219
  3. CEFTRIAXONE. [Concomitant]
     Active Substance: CEFTRIAXONE
     Indication: PRODUCT USED FOR UNKNOWN INDICATION
     Dosage: 2 UNK, QD
     Dates: start: 20181117, end: 20181120
  4. DEXAMETHASONE. [Concomitant]
     Active Substance: DEXAMETHASONE
     Dosage: 12 MILLIGRAM, QD
     Dates: start: 20181127
  5. DOMPERIDONE [Concomitant]
     Active Substance: DOMPERIDONE
     Indication: PRODUCT USED FOR UNKNOWN INDICATION
     Dosage: 10 MILLIGRAM, QD
     Dates: start: 20190312, end: 20190316
  6. DOXORUBICIN [Concomitant]
     Active Substance: DOXORUBICIN
     Dosage: 45 UNK, QD
     Dates: start: 20190404
  7. ERDOSTEINE [Concomitant]
     Active Substance: ERDOSTEINE
     Indication: PRODUCT USED FOR UNKNOWN INDICATION
     Dosage: 300 MILLIGRAM, QD
     Dates: start: 20181109, end: 20181212
  8. LANSOPRAZOLE. [Concomitant]
     Active Substance: LANSOPRAZOLE
     Indication: PRODUCT USED FOR UNKNOWN INDICATION
     Dosage: 30 MILLIGRAM, QD
     Dates: start: 20190117, end: 20190213
  9. OLARATUMAB [Concomitant]
     Active Substance: OLARATUMAB
     Dosage: UNK UNK, QD
     Dates: start: 20181204
  10. ACECLOFENAC [Concomitant]
     Active Substance: ACECLOFENAC
     Indication: PRODUCT USED FOR UNKNOWN INDICATION
     Dosage: 100 MILLIGRAM, QD
     Dates: start: 20181102, end: 20181105
  11. CHLORPHENAMINE [Concomitant]
     Active Substance: CHLORPHENIRAMINE MALEATE
     Indication: PRODUCT USED FOR UNKNOWN INDICATION
     Dosage: 4 MILLIGRAM, QD
     Dates: start: 20181102
  12. DEXAMETHASONE. [Concomitant]
     Active Substance: DEXAMETHASONE
     Dosage: 12 MILLIGRAM, QD
     Dates: start: 20190212
  13. DOXORUBICIN [Concomitant]
     Active Substance: DOXORUBICIN
     Dosage: 45 UNK, QD
     Dates: start: 20190212
  14. GABAPENTIN. [Concomitant]
     Active Substance: GABAPENTIN
     Indication: PRODUCT USED FOR UNKNOWN INDICATION
     Dosage: 100 MILLIGRAM, QD
     Dates: start: 20181129, end: 20181213
  15. APREPITANT. [Concomitant]
     Active Substance: APREPITANT
     Indication: PRODUCT USED FOR UNKNOWN INDICATION
     Dosage: 150 MILLIGRAM, QD
     Dates: start: 20181127
  16. APREPITANT. [Concomitant]
     Active Substance: APREPITANT
     Dosage: 150 MILLIGRAM, QD
     Dates: start: 20190305, end: 20190305
  17. DEXAMETHASONE. [Concomitant]
     Active Substance: DEXAMETHASONE
     Indication: PRODUCT USED FOR UNKNOWN INDICATION
     Dosage: 5 MILLIGRAM, QD
     Dates: start: 20181102
  18. DOXORUBICIN [Concomitant]
     Active Substance: DOXORUBICIN
     Dosage: 75 UNK, QD
     Dates: start: 20181102
  19. METOCLOPRAMIDE. [Concomitant]
     Active Substance: METOCLOPRAMIDE
     Dosage: 5 MILLIGRAM, QD
     Dates: start: 20181102, end: 20181106
  20. METOCLOPRAMIDE. [Concomitant]
     Active Substance: METOCLOPRAMIDE
     Dosage: 10 MILLIGRAM, QD
     Dates: start: 20181204, end: 20181204
  21. MOSAPRIDE [Concomitant]
     Active Substance: MOSAPRIDE
     Indication: PRODUCT USED FOR UNKNOWN INDICATION
     Dosage: 5 MILLIGRAM, QD
     Dates: start: 20181120
  22. OXYCODONE [Concomitant]
     Active Substance: OXYCODONE
     Dosage: 10 MILLIGRAM, QD
     Dates: start: 20181203, end: 20181216
  23. SUCRALFATE. [Concomitant]
     Active Substance: SUCRALFATE
     Dosage: 15 UNK, QD
     Dates: start: 20190117, end: 20190130
  24. OLARATUMAB [Concomitant]
     Active Substance: OLARATUMAB
     Indication: PRODUCT USED FOR UNKNOWN INDICATION
     Dosage: UNK UNK, QD
     Dates: start: 20181102
  25. OLARATUMAB [Concomitant]
     Active Substance: OLARATUMAB
     Dosage: UNK UNK, QD
     Dates: start: 20190305
  26. CHLORPHENAMINE [Concomitant]
     Active Substance: CHLORPHENIRAMINE MALEATE
     Dosage: 4 MILLIGRAM, QD
     Dates: start: 20181109
  27. CHLORPHENAMINE [Concomitant]
     Active Substance: CHLORPHENIRAMINE MALEATE
     Dosage: 4 MILLIGRAM, QD
     Dates: start: 20181127
  28. CHLORPHENAMINE [Concomitant]
     Active Substance: CHLORPHENIRAMINE MALEATE
     Dosage: 4 MILLIGRAM, QD
     Dates: start: 20190305
  29. CHLORPHENAMINE [Concomitant]
     Active Substance: CHLORPHENIRAMINE MALEATE
     Dosage: 4 MILLIGRAM, QD
     Dates: start: 20190404
  30. DOXORUBICIN [Concomitant]
     Active Substance: DOXORUBICIN
     Dosage: 45 UNK, QD
     Dates: start: 20190305
  31. MORPHINE [Concomitant]
     Active Substance: MORPHINE
     Dosage: 5 MILLIGRAM, QD
     Dates: start: 20181101, end: 20181102
  32. OXYCODONE [Concomitant]
     Active Substance: OXYCODONE
     Indication: PRODUCT USED FOR UNKNOWN INDICATION
     Dosage: 5 MILLIGRAM, QD
     Dates: start: 20181102, end: 20181122
  33. TIROPRAMIDE [Concomitant]
     Active Substance: TIROPRAMIDE
     Indication: PRODUCT USED FOR UNKNOWN INDICATION
     Dosage: 300 MILLIGRAM, QD
     Dates: start: 20190413, end: 20190419
  34. FILGRASTIM [Suspect]
     Active Substance: FILGRASTIM
     Dosage: 300 UNK, QD
     Route: 065
     Dates: start: 20181210, end: 20181210
  35. APREPITANT. [Concomitant]
     Active Substance: APREPITANT
     Dosage: 150 MILLIGRAM, QD
     Dates: start: 20190110
  36. APREPITANT. [Concomitant]
     Active Substance: APREPITANT
     Dosage: 150 MILLIGRAM, QD
     Dates: start: 20190404, end: 20190404
  37. BENZYDAMINE [Concomitant]
     Active Substance: BENZYDAMINE
     Indication: PRODUCT USED FOR UNKNOWN INDICATION
     Dosage: 10 UNK, QD
     Dates: start: 20181102
  38. CHLORPHENAMINE [Concomitant]
     Active Substance: CHLORPHENIRAMINE MALEATE
     Dosage: 4 MILLIGRAM, QD
     Dates: start: 20190212
  39. CIMETIDINE [Concomitant]
     Active Substance: CIMETIDINE
     Indication: PRODUCT USED FOR UNKNOWN INDICATION
     Dosage: 600 MILLIGRAM, QD
     Dates: start: 20190413, end: 20190419
  40. DEXAMETHASONE. [Concomitant]
     Active Substance: DEXAMETHASONE
     Dosage: 5 MILLIGRAM, QD
     Dates: start: 20181204
  41. DEXAMETHASONE. [Concomitant]
     Active Substance: DEXAMETHASONE
     Dosage: 5 MILLIGRAM, QD
     Dates: start: 20190219
  42. DEXAMETHASONE. [Concomitant]
     Active Substance: DEXAMETHASONE
     Dosage: 12 MILLIGRAM, QD
     Dates: start: 20190110
  43. DOXORUBICIN [Concomitant]
     Active Substance: DOXORUBICIN
     Indication: PRODUCT USED FOR UNKNOWN INDICATION
     Dosage: 45 UNK, QD
     Dates: start: 20190110
  44. LACTULOSE. [Concomitant]
     Active Substance: LACTULOSE
     Indication: PRODUCT USED FOR UNKNOWN INDICATION
     Dosage: 15 UNK, QD
     Dates: start: 20190312, end: 20190325
  45. LORAZEPAM. [Concomitant]
     Active Substance: LORAZEPAM
     Indication: PRODUCT USED FOR UNKNOWN INDICATION
     Dosage: 2 MILLIGRAM, QD
     Dates: start: 20181127, end: 20181127
  46. MAGNESIUM OXIDE. [Concomitant]
     Active Substance: MAGNESIUM OXIDE
     Dosage: 500 MILLIGRAM, QD
     Dates: start: 20190312, end: 20190325
  47. METOCLOPRAMIDE. [Concomitant]
     Active Substance: METOCLOPRAMIDE
     Dosage: 30 MILLIGRAM, QD
     Dates: start: 20181127, end: 20181127
  48. MORPHINE [Concomitant]
     Active Substance: MORPHINE
     Indication: PRODUCT USED FOR UNKNOWN INDICATION
     Dosage: 3 MILLIGRAM, QD
     Dates: start: 20181127, end: 20181129
  49. OLARATUMAB [Concomitant]
     Active Substance: OLARATUMAB
     Dosage: UNK UNK, QD
     Dates: start: 20190110
  50. OLARATUMAB [Concomitant]
     Active Substance: OLARATUMAB
     Dosage: UNK UNK, QD
     Dates: start: 20190212
  51. CHLORPHENAMINE [Concomitant]
     Active Substance: CHLORPHENIRAMINE MALEATE
     Dosage: 4 MILLIGRAM, QD
     Dates: start: 20181204
  52. CHLORPHENAMINE [Concomitant]
     Active Substance: CHLORPHENIRAMINE MALEATE
     Dosage: 4 MILLIGRAM, QD
     Dates: start: 20190117
  53. CHLORPHENAMINE [Concomitant]
     Active Substance: CHLORPHENIRAMINE MALEATE
     Dosage: 4 MILLIGRAM, QD
     Dates: start: 20190312
  54. DEXAMETHASONE. [Concomitant]
     Active Substance: DEXAMETHASONE
     Dosage: 5 MILLIGRAM, QD
     Dates: start: 20181109
  55. EPERISONE [Concomitant]
     Active Substance: EPERISONE
     Indication: PRODUCT USED FOR UNKNOWN INDICATION
     Dosage: 50 MILLIGRAM, QD
     Dates: start: 20181210, end: 20190213
  56. GABAPENTIN. [Concomitant]
     Active Substance: GABAPENTIN
     Dosage: 300 MILLIGRAM, QD
     Dates: start: 20181214, end: 20190213
  57. LEVOFLOXACIN. [Concomitant]
     Active Substance: LEVOFLOXACIN
     Indication: PRODUCT USED FOR UNKNOWN INDICATION
     Dosage: 750 MILLIGRAM, QD
     Dates: start: 20181207, end: 20181209
  58. METOCLOPRAMIDE. [Concomitant]
     Active Substance: METOCLOPRAMIDE
     Dosage: 10 MILLIGRAM, QD
     Dates: start: 20181102, end: 20181102
  59. PARACETAMOL [Concomitant]
     Active Substance: ACETAMINOPHEN
     Indication: PRODUCT USED FOR UNKNOWN INDICATION
     Dosage: 1300 MILLIGRAM, QD
     Dates: start: 20181117, end: 20181119
  60. PARACETAMOL [Concomitant]
     Active Substance: ACETAMINOPHEN
     Dosage: 3600 MILLIGRAM, QD
     Dates: start: 20190413, end: 20190417
  61. SUCRALFATE. [Concomitant]
     Active Substance: SUCRALFATE
     Indication: PRODUCT USED FOR UNKNOWN INDICATION
     Dosage: 15 UNK, QD
     Dates: start: 20181127, end: 20181130
  62. FILGRASTIM [Suspect]
     Active Substance: FILGRASTIM
     Indication: PRODUCT USED FOR UNKNOWN INDICATION
     Dosage: 300 UNK, QD
     Route: 065
     Dates: start: 20190326, end: 20190326
  63. FILGRASTIM [Suspect]
     Active Substance: FILGRASTIM
     Dosage: 300 UNK, QD
     Route: 065
     Dates: start: 20181113, end: 20181113
  64. OLARATUMAB [Concomitant]
     Active Substance: OLARATUMAB
     Dosage: UNK UNK, QD
     Dates: start: 20181127
  65. OLARATUMAB [Concomitant]
     Active Substance: OLARATUMAB
     Dosage: UNK UNK, QD
     Dates: start: 20190312
  66. APREPITANT. [Concomitant]
     Active Substance: APREPITANT
     Dosage: 150 MILLIGRAM, QD
     Dates: start: 20190212
  67. APREPITANT. [Concomitant]
     Active Substance: APREPITANT
     Dosage: 150 MILLIGRAM, QD
     Dates: start: 20190212, end: 20190212
  68. CHLORPHENAMINE [Concomitant]
     Active Substance: CHLORPHENIRAMINE MALEATE
     Dosage: 4 MILLIGRAM, QD
     Dates: start: 20190110
  69. CHLORPHENAMINE [Concomitant]
     Active Substance: CHLORPHENIRAMINE MALEATE
     Dosage: 4 MILLIGRAM, QD
     Dates: start: 20190219
  70. CHLORPHENAMINE [Concomitant]
     Active Substance: CHLORPHENIRAMINE MALEATE
     Dosage: 4 MILLIGRAM, QD
     Dates: start: 20190411
  71. DEXAMETHASONE. [Concomitant]
     Active Substance: DEXAMETHASONE
     Dosage: 5 MILLIGRAM, QD
     Dates: start: 20190312
  72. DEXAMETHASONE. [Concomitant]
     Active Substance: DEXAMETHASONE
     Dosage: 12 MILLIGRAM, QD
     Dates: start: 20190404
  73. DOXORUBICIN [Concomitant]
     Active Substance: DOXORUBICIN
     Dosage: 60 UNK, QD
     Dates: start: 20181127
  74. ESOMEPRAZOLE. [Concomitant]
     Active Substance: ESOMEPRAZOLE MAGNESIUM
     Indication: PRODUCT USED FOR UNKNOWN INDICATION
     Dosage: 20 MILLIGRAM, QD
     Dates: start: 20181119
  75. METOCLOPRAMIDE. [Concomitant]
     Active Substance: METOCLOPRAMIDE
     Dosage: 5 MILLIGRAM, QD
     Dates: start: 20181204, end: 20181216
  76. REBAMIPIDE [Concomitant]
     Active Substance: REBAMIPIDE
     Indication: PRODUCT USED FOR UNKNOWN INDICATION
     Dosage: 100 MILLIGRAM, QD
     Dates: start: 20181127
  77. OLARATUMAB [Concomitant]
     Active Substance: OLARATUMAB
     Dosage: UNK UNK, QD
     Dates: start: 20190117
  78. OLARATUMAB [Concomitant]
     Active Substance: OLARATUMAB
     Dosage: UNK UNK, QD
     Dates: start: 20190404
  79. OLARATUMAB [Concomitant]
     Active Substance: OLARATUMAB
     Dosage: UNK UNK, QD
     Dates: start: 20190411
  80. CEFPODOXIME [Concomitant]
     Active Substance: CEFPODOXIME
     Indication: PRODUCT USED FOR UNKNOWN INDICATION
     Dosage: 400 MILLIGRAM, QD
     Dates: start: 20190413, end: 20190419
  81. DEXAMETHASONE. [Concomitant]
     Active Substance: DEXAMETHASONE
     Dosage: 12 MILLIGRAM, QD
     Dates: start: 20190305
  82. LOPERAMIDE [Concomitant]
     Active Substance: LOPERAMIDE
     Indication: PRODUCT USED FOR UNKNOWN INDICATION
     Dosage: 4 MILLIGRAM, QD
     Dates: start: 20181102, end: 20181108
  83. MAGNESIUM OXIDE. [Concomitant]
     Active Substance: MAGNESIUM OXIDE
     Indication: PRODUCT USED FOR UNKNOWN INDICATION
     Dosage: 500 MILLIGRAM, QD
     Dates: start: 20181102, end: 20181108
  84. PALONOSETRON. [Concomitant]
     Active Substance: PALONOSETRON HYDROCHLORIDE
     Indication: PRODUCT USED FOR UNKNOWN INDICATION
     Dosage: 0.25 MILLIGRAM, QD
     Dates: start: 20181102

REACTIONS (14)
  - Asthenia [Recovering/Resolving]
  - Weight decreased [Recovering/Resolving]
  - Neck pain [Recovering/Resolving]
  - Thrombocytopenia [Recovered/Resolved]
  - Eating disorder [Recovering/Resolving]
  - Dizziness [Recovered/Resolved]
  - Flank pain [Recovering/Resolving]
  - Vomiting [Recovered/Resolved]
  - Febrile neutropenia [Recovered/Resolved]
  - Neutropenia [Recovered/Resolved]
  - Arthralgia [Recovering/Resolving]
  - Stomatitis [Recovered/Resolved]
  - Sputum abnormal [Recovered/Resolved]
  - Nausea [Recovered/Resolved]

NARRATIVE: CASE EVENT DATE: 20181109
